FAERS Safety Report 5414806-3 (Version None)
Quarter: 2007Q3

REPORT INFORMATION
  Report Type: 
  Country: None (occurrence: None)
  Receive Date: 20070815
  Receipt Date: 20070803
  Transmission Date: 20080115
  Serious: Yes (Other)
  Sender: FDA-Public Use
  Company Number: FR-JNJFOC-20050302840

PATIENT
  Sex: Male
  Weight: 96 kg

DRUGS (10)
  1. ABCIXIMAB [Suspect]
     Route: 042
  2. ABCIXIMAB [Suspect]
     Indication: MYOCARDIAL INFARCTION
     Route: 042
  3. PLACEBO [Suspect]
     Indication: MYOCARDIAL INFARCTION
     Route: 042
  4. PLACEBO [Suspect]
     Route: 042
  5. PLAVIX [Concomitant]
     Indication: ACUTE MYOCARDIAL INFARCTION
     Route: 048
  6. KARDEGIC [Concomitant]
     Indication: ACUTE MYOCARDIAL INFARCTION
     Route: 048
  7. LOVENOX [Concomitant]
     Indication: ACUTE MYOCARDIAL INFARCTION
     Route: 058
  8. TRIATEC [Concomitant]
     Indication: ACUTE MYOCARDIAL INFARCTION
     Route: 048
  9. ELISOR [Concomitant]
     Indication: ACUTE MYOCARDIAL INFARCTION
     Route: 048
  10. BISOPROLOL [Concomitant]
     Route: 048

REACTIONS (1)
  - FEMORAL ARTERY ANEURYSM [None]
